FAERS Safety Report 19072253 (Version 1)
Quarter: 2021Q1

REPORT INFORMATION
  Report Type: Spontaneous
  Country: US (occurrence: US)
  Receive Date: 20210329
  Receipt Date: 20210329
  Transmission Date: 20210420
  Serious: Yes (Disabling, Other)
  Sender: FDA-Public Use
  Company Number: None

PATIENT
  Age: 45 Year
  Sex: Male
  Weight: 80.55 kg

DRUGS (1)
  1. IVERMECTIN. [Suspect]
     Active Substance: IVERMECTIN
     Indication: ACARODERMATITIS

REACTIONS (18)
  - Malaise [None]
  - Asthenia [None]
  - Memory impairment [None]
  - Arthritis [None]
  - Nausea [None]
  - Urinary tract disorder [None]
  - Abdominal pain [None]
  - Ulcer [None]
  - Synovitis [None]
  - Urticaria [None]
  - Pyrexia [None]
  - Depressed level of consciousness [None]
  - Chills [None]
  - Weight decreased [None]
  - Livedo reticularis [None]
  - Arthralgia [None]
  - Fatigue [None]
  - Abdominal discomfort [None]

NARRATIVE: CASE EVENT DATE: 20181107
